FAERS Safety Report 5197765-0 (Version None)
Quarter: 2007Q1

REPORT INFORMATION
  Report Type: 
  Country: None (occurrence: None)
  Receive Date: 20070103
  Receipt Date: 20030731
  Transmission Date: 20070707
  Serious: Yes (Hospitalization)
  Sender: FDA-Public Use
  Company Number: GB-MERCK-0306GBR00004

PATIENT
  Age: 46 Year
  Sex: Female

DRUGS (6)
  1. SINGULAIR [Suspect]
     Indication: ASTHMA
     Route: 048
     Dates: start: 20000101, end: 20030301
  2. CETIRIZINE HYDROCHLORIDE [Concomitant]
     Indication: HYPERSENSITIVITY
     Route: 065
     Dates: start: 20010126
  3. FLUTICASONE PROPIONATE [Concomitant]
     Indication: ASTHMA
  4. ALBUTEROL [Concomitant]
     Indication: ASTHMA
     Route: 065
  5. OMEPRAZOLE [Concomitant]
     Indication: HIATUS HERNIA
     Route: 065
     Dates: start: 20020401
  6. FORMOTEROL FUMARATE [Concomitant]
     Indication: ASTHMA
     Route: 065

REACTIONS (8)
  - ANAEMIA [None]
  - CHOLECYSTITIS CHRONIC [None]
  - CHOLESTEROSIS [None]
  - EPISTAXIS [None]
  - HEPATIC STEATOSIS [None]
  - HEPATITIS [None]
  - MENORRHAGIA [None]
  - RECTAL HAEMORRHAGE [None]
